FAERS Safety Report 10244194 (Version 1)
Quarter: 2014Q2

REPORT INFORMATION
  Report Type: Spontaneous
  Country: FR (occurrence: None)
  Receive Date: 20140616
  Receipt Date: 20140616
  Transmission Date: 20141212
  Serious: Yes (Hospitalization)
  Sender: FDA-Public Use
  Company Number: SYM-2014-22007

PATIENT
  Age: 49 Year
  Sex: Male

DRUGS (14)
  1. FLAGYL (METRONIDAZOLE) (500 MILLIGRAM, FILM-COATED TABLET) (METRONIDAZOLE) [Suspect]
     Indication: PRODUCT USED FOR UNKNOWN INDICATION
     Route: 048
     Dates: start: 20090613, end: 20090624
  2. MORPHINE (MORPHINE) (SOLUTION FOR INJECTION) (MORPHINE) [Suspect]
     Indication: PRODUCT USED FOR UNKNOWN INDICATION
     Dosage: 150 MG, DAILY, INTRAVENOUS (NOT OTHERWISE SPECIFIED)
     Route: 042
     Dates: start: 20090610
  3. PENTACARINAT (PENTAMIDINE ISETHIONATE) (300 MILLIGRAM, POWDER FOR SOLUTION FOR INJECTION) (PENTAMIDINE ISETHIONATE) [Suspect]
     Indication: PRODUCT USED FOR UNKNOWN INDICATION
     Route: 055
     Dates: start: 20090603, end: 20090603
  4. PRIMPERAN (METOCLOPRAMIDE HYDROCHLORIDE) (METOCLOPRAMIDE HYDROCHLORIDE) [Suspect]
     Indication: NAUSEA
     Route: 048
  5. METHOTREXATE BELLON (METHOTREXATE) (SOLUTION FOR INJECTION) (METHOTREXATE) [Suspect]
     Indication: PRODUCT USED FOR UNKNOWN INDICATION
     Dosage: EVERY OTHER DAY, INTRAVENOUS (NOT OTHERWISE SPECIFIED)?
     Route: 042
     Dates: start: 20090604, end: 20090609
  6. NOXAFIL (POSACONAZOLE) (ORAL SUSPENSION) (POSACONAZOLE) [Suspect]
     Indication: ANTIFUNGAL PROPHYLAXIS
     Route: 048
     Dates: start: 20090617, end: 20090630
  7. TRIFLUCAN (FLUCONAZOLE) (FLUCONAZOLE) [Suspect]
     Indication: MUCOSAL INFLAMMATION
     Dosage: 12 GM, 3 IN 1 D, INTRAVENOUS (NOT OTHERWISE SPECIFIED)
     Route: 042
     Dates: start: 20090613, end: 20090616
  8. TAZOCILLINE (PIP/TAZO) (POWDER FOR SOLUTION FOR INFUSION) (PEPERACILLIN SODIUM, TAZOBACTAM SODIUM) [Suspect]
     Indication: PRODUCT USED FOR UNKNOWN INDICATION
     Dosage: 12 GM, 3 IN 1 D, INTRAVENOUS (NOT OTHERWISE SPECIFIED)
     Route: 042
  9. AMBISOME (AMPHOTERICIN B, LIPOSOME) (AMPHOTERICIN B, LIPOSOME) [Suspect]
     Indication: PRODUCT USED FOR UNKNOWN INDICATION
     Dosage: INTRAVENOUS (NOT OTHERWISE SPECIFIED)
     Route: 042
     Dates: start: 20090616, end: 20090616
  10. VELCADE (BORTEZOMIB) (POWDER FOR SOLUTION FOR INJECTION) (BORTEZOMIB) [Suspect]
     Indication: PLASMA CELL MYELOMA
     Dosage: DAILY, INTRAVENOUS (NOT OTHERWISE SPECIFIED)?
     Route: 042
     Dates: start: 20080715, end: 20090531
  11. FLUDARABINE PHOSPHATE (POWDER FOR SOLUTION FOR INJECTION) (FLUDARABINE PHOSPHATE) [Suspect]
     Indication: PLASMA CELL MYELOMA
     Dosage: DAILY, INTRAVENOUS (NOT OTHERWISE SPECIFIED)??
     Route: 042
  12. ALKERAN (MELPHALAN) (MELPHALAN) [Suspect]
     Indication: PLASMA CELL MYELOMA
     Dosage: ONCE, INTRAVENOUS (NOT OTHERWISE SPECIFIED)??
     Route: 042
     Dates: start: 20090601, end: 20090601
  13. VANCOMYCIN HYDROCHLORIDE (SOLUTION FOR INJECTION) (VANCOMYCIN HYDROHCLORIDE) [Suspect]
     Indication: PRODUCT USED FOR UNKNOWN INDICATION
     Dosage: INTRAVENOUS (NOT OTHERWISE SPECIFIED)?
     Route: 042
     Dates: start: 20090611, end: 20090624
  14. NICARDIPINE HYDROCHLORIDE (PROLONGED-RELEASED CAPSULE) (NICARDIPINE HYDROCHLORIDE) [Suspect]
     Indication: HYPERTENSION
     Route: 048

REACTIONS (5)
  - Erythema [None]
  - Acute graft versus host disease in skin [None]
  - Mucosal inflammation [None]
  - Liver injury [None]
  - Cholestasis [None]
